FAERS Safety Report 7677233-4 (Version None)
Quarter: 2011Q3

REPORT INFORMATION
  Report Type: 
  Country: None (occurrence: None)
  Receive Date: 20110810
  Receipt Date: 20110810
  Transmission Date: 20111222
  Serious: Yes (Other)
  Sender: FDA-Public Use
  Company Number: None

PATIENT
  Sex: Female

DRUGS (1)
  1. OXYCONTIN [Suspect]
     Indication: ANALGESIC THERAPY
     Dosage: 40 MG TID PO
     Route: 048
     Dates: start: 20101014, end: 20101022

REACTIONS (3)
  - THERAPEUTIC RESPONSE DELAYED [None]
  - HEADACHE [None]
  - NAUSEA [None]
